FAERS Safety Report 8781576 (Version 2)
Quarter: 2012Q4

REPORT INFORMATION
  Report Type: 
  Country: US (occurrence: US)
  Receive Date: 20120913
  Receipt Date: 20121029
  Transmission Date: 20130627
  Serious: Yes (Hospitalization, Other)
  Sender: FDA-Public Use
  Company Number: US-BAYER-2012-093942

PATIENT
  Age: 39 Year
  Sex: Female

DRUGS (7)
  1. YASMIN [Suspect]
     Dosage: UNK
     Dates: start: 200706
  2. YAZ [Suspect]
     Dosage: UNK
     Dates: start: 200706
  3. OCELLA [Suspect]
     Dosage: UNK
     Dates: start: 200706
  4. TYLENOL [Concomitant]
  5. VICODIN [Concomitant]
  6. FLEET LAXATIVE [Concomitant]
  7. DILAUDID [Concomitant]

REACTIONS (7)
  - Pulmonary embolism [None]
  - Deep vein thrombosis [None]
  - Myocardial infarction [None]
  - Cerebrovascular accident [None]
  - Gallbladder disorder [None]
  - Injury [None]
  - Pain [None]
